FAERS Safety Report 6735240-X (Version None)
Quarter: 2010Q2

REPORT INFORMATION
  Report Type: 
  Country: None (occurrence: None)
  Receive Date: 20100520
  Receipt Date: 20100520
  Transmission Date: 20101027
  Serious: Yes (Death)
  Sender: FDA-Public Use
  Company Number: None

PATIENT
  Age: 90 Year
  Sex: Female
  Weight: 68.0396 kg

DRUGS (4)
  1. LIALDA [Suspect]
     Indication: PROCTOCOLITIS
     Dosage: 1.2 GRAMS 2 DAILY PO
     Route: 048
  2. WELCHOL [Suspect]
     Dosage: 625 MG TWICE PO BID PO
     Route: 048
  3. CALCIUM [Concomitant]
  4. GLUCOSAMINE/CHONDROITIN [Concomitant]

REACTIONS (8)
  - CARDIAC FAILURE CONGESTIVE [None]
  - COLITIS [None]
  - CONDITION AGGRAVATED [None]
  - GENERAL PHYSICAL HEALTH DETERIORATION [None]
  - ILEUS [None]
  - MYALGIA [None]
  - PNEUMONIA ASPIRATION [None]
  - RENAL FAILURE ACUTE [None]
